FAERS Safety Report 18694326 (Version 1)
Quarter: 2020Q4

REPORT INFORMATION
  Report Type: Spontaneous
  Country: US (occurrence: US)
  Receive Date: 20201230
  Receipt Date: 20201230
  Transmission Date: 20210114
  Serious: Yes (Life-Threatening, Hospitalization)
  Sender: FDA-Public Use
  Company Number: None

PATIENT
  Age: 64 Year
  Sex: Male

DRUGS (2)
  1. METOLAZONE (METOLAZONE 5MG TAB) [Suspect]
     Active Substance: METOLAZONE
     Indication: ATRIAL FIBRILLATION
     Route: 048
     Dates: start: 20200205, end: 20201015
  2. METOLAZONE (METOLAZONE 5MG TAB) [Suspect]
     Active Substance: METOLAZONE
     Indication: FLUID OVERLOAD
     Route: 048
     Dates: start: 20200205, end: 20201015

REACTIONS (1)
  - Hypokalaemia [None]

NARRATIVE: CASE EVENT DATE: 20201018
